FAERS Safety Report 12211606 (Version 1)
Quarter: 2016Q1

REPORT INFORMATION
  Report Type: Spontaneous
  Country: US (occurrence: US)
  Receive Date: 20160325
  Receipt Date: 20160325
  Transmission Date: 20160526
  Serious: Yes (Other)
  Sender: FDA-Public Use
  Company Number: US-MDT-ADR-2016-00393

PATIENT
  Age: 35 Year
  Sex: Male
  Weight: 89 kg

DRUGS (5)
  1. NORCO [Suspect]
     Active Substance: ACETAMINOPHEN\HYDROCODONE BITARTRATE
     Dosage: 10-325 MG
  2. VALIUM [Suspect]
     Active Substance: DIAZEPAM
     Dosage: 5 MG/BID/PRN
  3. NEURONTIN [Suspect]
     Active Substance: GABAPENTIN
     Dosage: 600 MG/3XDAY
  4. CELEXA [Suspect]
     Active Substance: CITALOPRAM HYDROBROMIDE
     Dosage: 40 MG/DAY
  5. BACLOFEN. [Suspect]
     Active Substance: BACLOFEN
     Route: 037

REACTIONS (7)
  - Medical device site swelling [None]
  - Medical device site mass [None]
  - Medical device site extravasation [None]
  - Peroneal nerve palsy [None]
  - Incorrect route of drug administration [None]
  - Medical device site discharge [None]
  - Medical device site haematoma [None]
